FAERS Safety Report 23284604 (Version 2)
Quarter: 2024Q1

REPORT INFORMATION
  Report Type: Spontaneous
  Country: US (occurrence: US)
  Receive Date: 20231211
  Receipt Date: 20240104
  Transmission Date: 20240410
  Serious: Yes (Death, Hospitalization)
  Sender: FDA-Public Use
  Company Number: US-PFIZER INC-2021257931

PATIENT
  Age: 86 Year
  Sex: Male
  Weight: 68.04 kg

DRUGS (1)
  1. VYNDAMAX [Suspect]
     Active Substance: TAFAMIDIS
     Indication: Cardiac amyloidosis
     Dosage: 61 MG, 1X/DAY
     Dates: start: 2021

REACTIONS (3)
  - Death [Fatal]
  - Asthenia [Unknown]
  - Organ failure [Unknown]

NARRATIVE: CASE EVENT DATE: 20231203
